FAERS Safety Report 8503186-2 (Version None)
Quarter: 2012Q3

REPORT INFORMATION
  Report Type: 
  Country: None (occurrence: None)
  Receive Date: 20120711
  Receipt Date: 20120706
  Transmission Date: 20120928
  Serious: No
  Sender: FDA-Public Use
  Company Number: US-PFIZER INC-2012162727

PATIENT
  Age: 60 Year
  Sex: Male
  Weight: 69.841 kg

DRUGS (2)
  1. TYGACIL [Suspect]
     Dosage: 50 MG, UNK
     Dates: start: 20120702, end: 20120703
  2. TYGACIL [Suspect]
     Indication: INFECTION
     Dosage: 100 MG, UNK
     Dates: start: 20120701

REACTIONS (1)
  - BLOOD ALKALINE PHOSPHATASE INCREASED [None]
